FAERS Safety Report 12548859 (Version 1)
Quarter: 2016Q3

REPORT INFORMATION
  Report Type: Spontaneous
  Country: US (occurrence: None)
  Receive Date: 20160711
  Receipt Date: 20160711
  Transmission Date: 20161109
  Serious: Yes (Other)
  Sender: FDA-Public Use
  Company Number: None

PATIENT
  Age: 3 Month
  Sex: Female

DRUGS (5)
  1. MULTI-VITAMIN (MVI) [Concomitant]
  2. CICLOPIROX TOPICAL SOLUTION, 8% (NAIL LACQUER) [Suspect]
     Active Substance: CICLOPIROX
     Indication: ONYCHOMYCOSIS
     Route: 061
     Dates: start: 20160401, end: 20160609
  3. ZOLOFT [Concomitant]
     Active Substance: SERTRALINE HYDROCHLORIDE
  4. VITAMIN D3 [Concomitant]
     Active Substance: CHOLECALCIFEROL
  5. ABILIFY [Concomitant]
     Active Substance: ARIPIPRAZOLE

REACTIONS (3)
  - Drug ineffective [None]
  - Burning sensation [None]
  - Nail discolouration [None]

NARRATIVE: CASE EVENT DATE: 20160422
